FAERS Safety Report 9315942 (Version 1)
Quarter: 2013Q2

REPORT INFORMATION
  Report Type: Spontaneous
  Country: US (occurrence: US)
  Receive Date: 20130530
  Receipt Date: 20130530
  Transmission Date: 20140414
  Serious: No
  Sender: FDA-Public Use
  Company Number: US-009507513-1305USA014178

PATIENT
  Sex: Male

DRUGS (3)
  1. VICTRELIS [Suspect]
     Indication: HEPATITIS C
     Dosage: 800 MG, TID
     Route: 048
     Dates: start: 201208, end: 201303
  2. RIBAPAK [Suspect]
     Dosage: UNK
     Dates: end: 201303
  3. PEGASYS [Suspect]
     Dosage: UNK
     Dates: end: 201303

REACTIONS (2)
  - Hepatitis C [Unknown]
  - Drug ineffective [Unknown]
